FAERS Safety Report 15940020 (Version 1)
Quarter: 2019Q1

REPORT INFORMATION
  Report Type: Spontaneous
  Country: FR (occurrence: FR)
  Receive Date: 20190208
  Receipt Date: 20190208
  Transmission Date: 20190417
  Serious: Yes (Hospitalization)
  Sender: FDA-Public Use
  Company Number: FR-PFIZER INC-2019048824

PATIENT
  Age: 44 Year
  Sex: Male
  Weight: 88 kg

DRUGS (9)
  1. ACICLOVIR [Concomitant]
     Active Substance: ACYCLOVIR
     Dosage: UNK
     Dates: start: 20060619, end: 20060705
  2. ZYLORIC [Concomitant]
     Active Substance: ALLOPURINOL
     Dosage: 100 MG, ONCE A DAY
     Route: 048
  3. TRIFLUCAN [Concomitant]
     Active Substance: FLUCONAZOLE
     Dosage: UNK
     Dates: start: 20060612, end: 20060612
  4. FLAGYL [Suspect]
     Active Substance: METRONIDAZOLE\METRONIDAZOLE HYDROCHLORIDE
     Dosage: 500 MG, ONCE DAILY
     Route: 048
     Dates: start: 20060617, end: 20060705
  5. AMBISOME [Suspect]
     Active Substance: AMPHOTERICIN B
     Dosage: 250 MG, ONCE DAILY
     Route: 042
     Dates: start: 20060613, end: 20060617
  6. CERUBIDINE [Concomitant]
     Active Substance: DAUNORUBICIN HYDROCHLORIDE
     Dosage: 120 MG, ONCE A DAY
     Route: 042
     Dates: start: 20060609, end: 20060611
  7. CIFLOX [CIPROFLOXACIN] [Concomitant]
     Active Substance: CIPROFLOXACIN
     Dosage: 200 MG, ALTERNATE DAY
     Route: 042
     Dates: start: 20060623, end: 20060629
  8. CANCIDAS [Concomitant]
     Active Substance: CASPOFUNGIN ACETATE
     Dosage: UNK
     Dates: start: 20060617, end: 20060705
  9. ARACYTINE [Suspect]
     Active Substance: CYTARABINE
     Indication: ACUTE MYELOID LEUKAEMIA
     Dosage: 400 MG, ONCE DAILY
     Route: 042
     Dates: start: 20060609, end: 20060616

REACTIONS (1)
  - Hepatitis cholestatic [Recovered/Resolved]

NARRATIVE: CASE EVENT DATE: 20060626
